FAERS Safety Report 24840207 (Version 1)
Quarter: 2025Q1

REPORT INFORMATION
  Report Type: Spontaneous
  Country: US (occurrence: None)
  Receive Date: 20250113
  Receipt Date: 20250113
  Transmission Date: 20250408
  Serious: Yes (Life-Threatening, Disabling)
  Sender: FDA-CTU
  Company Number: None

PATIENT
  Age: 45 Year
  Sex: Male
  Weight: 92.25 kg

DRUGS (3)
  1. EFFEXOR [Suspect]
     Active Substance: VENLAFAXINE HYDROCHLORIDE
     Indication: Post-traumatic stress disorder
  2. DEVICE [Concomitant]
     Active Substance: DEVICE
  3. VITAMINS [Concomitant]
     Active Substance: VITAMINS

REACTIONS (12)
  - Fatigue [None]
  - Muscle spasms [None]
  - Tachyphrenia [None]
  - Muscular weakness [None]
  - Asthenia [None]
  - Migraine [None]
  - Hypoaesthesia [None]
  - Sleep disorder [None]
  - Urine analysis abnormal [None]
  - Palpitations [None]
  - Sexual dysfunction [None]
  - Peripheral coldness [None]

NARRATIVE: CASE EVENT DATE: 20211121
